FAERS Safety Report 6428831-7 (Version None)
Quarter: 2009Q4

REPORT INFORMATION
  Report Type: 
  Country: None (occurrence: None)
  Receive Date: 20091105
  Receipt Date: 20091027
  Transmission Date: 20100525
  Serious: Yes (Other)
  Sender: FDA-Public Use
  Company Number: UA-JNJFOC-20091006445

PATIENT
  Age: 26 Year
  Sex: Female

DRUGS (1)
  1. ORUNGAL [Suspect]
     Indication: TINEA CAPITIS
     Route: 048
     Dates: start: 20081202, end: 20090108

REACTIONS (2)
  - DRUG EXPOSURE BEFORE PREGNANCY [None]
  - INTRA-UTERINE DEATH [None]
